FAERS Safety Report 20917258 (Version 1)
Quarter: 2022Q2

REPORT INFORMATION
  Report Type: Spontaneous
  Country: US (occurrence: US)
  Receive Date: 20220606
  Receipt Date: 20220606
  Transmission Date: 20220721
  Serious: Yes (Hospitalization, Other)
  Sender: FDA-Public Use
  Company Number: US-AUROBINDO-AUR-APL-2022-020251

PATIENT
  Age: 22 Month
  Sex: Male

DRUGS (9)
  1. DEXMEDETOMIDINE [Suspect]
     Active Substance: DEXMEDETOMIDINE
     Indication: Sedative therapy
     Dosage: 0.5 MICROGRAM/KILOGRAM, EVERY HOUR
     Route: 065
  2. DEXMEDETOMIDINE [Suspect]
     Active Substance: DEXMEDETOMIDINE
     Dosage: 0.3 MICROGRAM/KILOGRAM, EVERY HOUR
     Route: 065
  3. ROCURONIUM BROMIDE [Suspect]
     Active Substance: ROCURONIUM BROMIDE
     Indication: Sedative therapy
     Dosage: UNK
     Route: 065
  4. ATIVAN [Suspect]
     Active Substance: LORAZEPAM
     Indication: Sedative therapy
     Dosage: 1 MILLIGRAM
     Route: 065
  5. FENTANYL [Suspect]
     Active Substance: FENTANYL
     Indication: Sedative therapy
     Dosage: 2 MICROGRAM/KILOGRAM, EVERY HOUR
     Route: 065
  6. MORPHINE [Suspect]
     Active Substance: MORPHINE
     Indication: Sedative therapy
     Dosage: UNK
     Route: 042
  7. PROPOFOL [Suspect]
     Active Substance: PROPOFOL
     Indication: Sedative therapy
     Dosage: 20 MICROGRAM/KILOGRAM PER MINUTE
     Route: 040
  8. PROPOFOL [Suspect]
     Active Substance: PROPOFOL
     Dosage: 3 MILLIGRAM
     Route: 065
  9. ACETAMINOPHEN [Concomitant]
     Active Substance: ACETAMINOPHEN
     Indication: Analgesic therapy
     Dosage: UNK
     Route: 042

REACTIONS (2)
  - Bradycardia [Unknown]
  - Hypotension [Recovered/Resolved]
